FAERS Safety Report 7476211-8 (Version None)
Quarter: 2011Q2

REPORT INFORMATION
  Report Type: 
  Country: None (occurrence: None)
  Receive Date: 20110512
  Receipt Date: 20110429
  Transmission Date: 20111010
  Serious: Yes (Other)
  Sender: FDA-Public Use
  Company Number: AU-JNJFOC-20110405233

PATIENT
  Sex: Female

DRUGS (2)
  1. INVEGA [Suspect]
     Indication: HALLUCINATION
     Route: 048
  2. INVEGA [Suspect]
     Route: 048

REACTIONS (5)
  - FALL [None]
  - PNEUMONIA ASPIRATION [None]
  - CONSCIOUSNESS FLUCTUATING [None]
  - HIP FRACTURE [None]
  - SEDATION [None]
